FAERS Safety Report 18352887 (Version 1)
Quarter: 2020Q4

REPORT INFORMATION
  Report Type: Spontaneous
  Country: ES (occurrence: ES)
  Receive Date: 20201007
  Receipt Date: 20201007
  Transmission Date: 20210114
  Serious: Yes (Other)
  Sender: FDA-Public Use
  Company Number: ES-AUROBINDO-AUR-APL-2020-050808

PATIENT

DRUGS (5)
  1. LETROZOLE. [Suspect]
     Active Substance: LETROZOLE
     Indication: HER2 POSITIVE BREAST CANCER
     Dosage: 2.5 MG/DAY
     Route: 065
  2. TRASTUZUMAB. [Suspect]
     Active Substance: TRASTUZUMAB
     Indication: HER2 POSITIVE BREAST CANCER
     Dosage: 8 MILLIGRAM/KILOGRAM, LOADING DOSE
     Route: 042
  3. TRASTUZUMAB. [Suspect]
     Active Substance: TRASTUZUMAB
     Dosage: 6 MILLIGRAM/KILOGRAM, MAINTENANCE DOSE
     Route: 042
  4. PALBOCICLIB [Suspect]
     Active Substance: PALBOCICLIB
     Indication: HER2 POSITIVE BREAST CANCER
     Dosage: 200 MILLIGRAM, DAILY (FOR 2 WEEKS FOLLOWED BY 1 WEEK OFF)
     Route: 048
  5. TRASTUZUMAB. [Suspect]
     Active Substance: TRASTUZUMAB
     Indication: HER2 POSITIVE BREAST CANCER
     Dosage: 600 MILLIGRAM BY SUBCUTANEOUS INJECTION EVERY 21 DAYS (MAINTENANCE DOSE)
     Route: 058

REACTIONS (1)
  - Electrocardiogram QT prolonged [Unknown]
